FAERS Safety Report 14247027 (Version 15)
Quarter: 2021Q1

REPORT INFORMATION
  Report Type: Report from Study
  Country: FR (occurrence: FR)
  Receive Date: 20171204
  Receipt Date: 20210330
  Transmission Date: 20210419
  Serious: Yes (Hospitalization)
  Sender: FDA-Public Use
  Company Number: PHHO2017FR014656

PATIENT
  Age: 68 Year
  Sex: Female
  Weight: 54 kg

DRUGS (5)
  1. PREDNISONE. [Suspect]
     Active Substance: PREDNISONE
     Indication: ACUTE GRAFT VERSUS HOST DISEASE IN INTESTINE
     Dosage: 45 TO 130 MG PER DAY
     Route: 048
     Dates: start: 20171003, end: 20171017
  2. MYCOPHENOLATE MOFETIL. [Suspect]
     Active Substance: MYCOPHENOLATE MOFETIL
     Indication: ACUTE GRAFT VERSUS HOST DISEASE
     Dosage: 500 MG, BID
     Route: 048
     Dates: start: 20171013
  3. TACROLIMUS. [Suspect]
     Active Substance: TACROLIMUS
     Indication: ACUTE GRAFT VERSUS HOST DISEASE IN INTESTINE
     Dosage: 1.5 MG, BID
     Route: 048
     Dates: start: 20171011
  4. INC424A [Suspect]
     Active Substance: RUXOLITINIB
     Indication: ACUTE GRAFT VERSUS HOST DISEASE
     Dosage: 10 MG, BID
     Route: 048
     Dates: start: 20170928
  5. PREDNISONE. [Suspect]
     Active Substance: PREDNISONE
     Dosage: 20 MG, QD (NOON)
     Route: 048
     Dates: start: 20171018

REACTIONS (1)
  - Bronchopulmonary aspergillosis [Recovered/Resolved]

NARRATIVE: CASE EVENT DATE: 20171017
